FAERS Safety Report 19074096 (Version 2)
Quarter: 2021Q2

REPORT INFORMATION
  Report Type: Report from Study
  Country: SE (occurrence: SE)
  Receive Date: 20210330
  Receipt Date: 20210408
  Transmission Date: 20210717
  Serious: Yes (Death)
  Sender: FDA-Public Use
  Company Number: SE-DECIPHERA PHARMACEUTICALS LLC-2021SE000258

PATIENT
  Age: 44 Year
  Sex: Male

DRUGS (1)
  1. DCC?2618 [Suspect]
     Active Substance: RIPRETINIB
     Indication: GASTROINTESTINAL STROMAL TUMOUR
     Dosage: UNK
     Dates: start: 20200605, end: 20210205

REACTIONS (1)
  - Disease progression [Fatal]
